FAERS Safety Report 6495765-1 (Version None)
Quarter: 2009Q4

REPORT INFORMATION
  Report Type: 
  Country: None (occurrence: None)
  Receive Date: 20091214
  Receipt Date: 20090811
  Transmission Date: 20100525
  Serious: No
  Sender: FDA-Public Use
  Company Number: US-BRISTOL-MYERS SQUIBB COMPANY-14736805

PATIENT
  Age: 8 Year
  Sex: Male
  Weight: 28 kg

DRUGS (2)
  1. ABILIFY [Suspect]
     Indication: AFFECTIVE DISORDER
     Dosage: INITIATED WITH 5 MG PER DAY AND INCREASED TO 10MG/D ABOUT 4 MONTHS BEFORE
     Dates: start: 20080101
  2. FLINTSTONES MULTIVITAMIN [Concomitant]

REACTIONS (1)
  - WEIGHT INCREASED [None]
